FAERS Safety Report 17358931 (Version 2)
Quarter: 2020Q1

REPORT INFORMATION
  Report Type: Spontaneous
  Country: US (occurrence: US)
  Receive Date: 20200202
  Receipt Date: 20200226
  Transmission Date: 20200409
  Serious: Yes (Other)
  Sender: FDA-Public Use
  Company Number: US-NOVOPROD-709418

PATIENT
  Age: 33 Year
  Sex: Female

DRUGS (3)
  1. ELAGOLIX [Suspect]
     Active Substance: ELAGOLIX
     Indication: ENDOMETRIOSIS
     Dosage: 400 MG, QD
     Route: 048
     Dates: start: 20190903
  2. ZYRTEC [Concomitant]
     Active Substance: CETIRIZINE HYDROCHLORIDE
     Indication: SEASONAL ALLERGY
     Dosage: 10 MG, PRN
     Route: 048
     Dates: start: 201804
  3. ACTIVELLA [Suspect]
     Active Substance: ESTRADIOL\NORETHINDRONE ACETATE
     Indication: ENDOMETRIOSIS
     Dosage: 1 TABLET QD
     Route: 048
     Dates: start: 20190903

REACTIONS (2)
  - Thrombosis [Unknown]
  - Off label use [Unknown]

NARRATIVE: CASE EVENT DATE: 20190903
